FAERS Safety Report 25776169 (Version 1)
Quarter: 2025Q3

REPORT INFORMATION
  Report Type: Spontaneous
  Country: US (occurrence: US)
  Receive Date: 20250909
  Receipt Date: 20250909
  Transmission Date: 20251021
  Serious: No
  Sender: DOMPE FARMACEUTICI
  Company Number: US-FARMAPROD-202408-2940

PATIENT
  Sex: Female

DRUGS (5)
  1. OXERVATE [Suspect]
     Active Substance: CENEGERMIN-BKBJ
     Indication: Neurotrophic keratopathy
     Route: 047
     Dates: start: 20240806
  2. ALREX [Concomitant]
     Active Substance: LOTEPREDNOL ETABONATE
  3. RESTASIS [Concomitant]
     Active Substance: CYCLOSPORINE
  4. BLOOD SERUM TEARS [Concomitant]
  5. OPTASE DRY EYE RELIEF [Concomitant]

REACTIONS (3)
  - Eye pain [Unknown]
  - Photophobia [Unknown]
  - Eye irritation [Unknown]
